FAERS Safety Report 18438944 (Version 1)
Quarter: 2020Q4

REPORT INFORMATION
  Report Type: Spontaneous
  Country: CA (occurrence: CA)
  Receive Date: 20201028
  Receipt Date: 20201028
  Transmission Date: 20210114
  Serious: Yes (Death, Other)
  Sender: FDA-Public Use
  Company Number: CA-PURDUE PHARMA-CAN-2018-0008440

PATIENT
  Age: 17 Year
  Sex: Male

DRUGS (1)
  1. MORPHINE SULFATE (SIMILAR TO NDA 19-516) [Suspect]
     Active Substance: MORPHINE SULFATE
     Indication: PAIN
     Dosage: UNK
     Route: 051
     Dates: start: 20170401

REACTIONS (8)
  - Respiratory arrest [Fatal]
  - Circulatory collapse [Fatal]
  - Overdose [Fatal]
  - Drug abuse [Unknown]
  - Unresponsive to stimuli [Fatal]
  - Drug abuse [Unknown]
  - Malaise [Unknown]
  - Seizure [Unknown]

NARRATIVE: CASE EVENT DATE: 20170401
